FAERS Safety Report 10240213 (Version 2)
Quarter: 2014Q2

REPORT INFORMATION
  Report Type: Spontaneous
  Country: US (occurrence: US)
  Receive Date: 20140617
  Receipt Date: 20140617
  Transmission Date: 20141212
  Serious: Yes (Other)
  Sender: FDA-Public Use
  Company Number: CHPA2014US006954

PATIENT
  Age: 70 Year
  Sex: Female

DRUGS (3)
  1. VOLTAREN GEL [Suspect]
     Indication: TRIGGER FINGER
     Dosage: JUT A LITTL BIT, PRN
     Route: 061
     Dates: start: 201312
  2. VOLTAREN GEL [Suspect]
     Indication: OFF LABEL USE
  3. VOLTAREN GEL [Suspect]
     Indication: OSTEOARTHRITIS

REACTIONS (5)
  - Arthritis [Not Recovered/Not Resolved]
  - Injury [Unknown]
  - Drug administered at inappropriate site [Unknown]
  - Wrong technique in drug usage process [Unknown]
  - Therapeutic response changed [Unknown]
